FAERS Safety Report 13389705 (Version 3)
Quarter: 2017Q2

REPORT INFORMATION
  Report Type: Report from Study
  Country: CA (occurrence: CA)
  Receive Date: 20170330
  Receipt Date: 20170503
  Transmission Date: 20170830
  Serious: Yes (Death, Hospitalization)
  Sender: FDA-Public Use
  Company Number: CA-HLSUS-2017-CA-000267

PATIENT
  Age: 59 Year
  Sex: Female

DRUGS (16)
  1. RABEPRAZOLE SODIUM. [Concomitant]
     Active Substance: RABEPRAZOLE SODIUM
     Dosage: 20 MG 1 TABLETS
  2. DITROPAN [Concomitant]
     Active Substance: OXYBUTYNIN CHLORIDE
     Dosage: 75 MG TABLET  MORNING
  3. CLOZARIL [Suspect]
     Active Substance: CLOZAPINE
     Indication: SCHIZOPHRENIA
     Dosage: 325 MG
     Route: 048
     Dates: start: 19930125, end: 20170403
  4. ELTROXIN [Concomitant]
     Active Substance: LEVOTHYROXINE
     Dosage: 0.05 MG 1 TABLET  MORNING
  5. LACTULOSE. [Concomitant]
     Active Substance: LACTULOSE
     Dosage: 30 ML BY MOUTH 3 TIMES DAILY AS REQUIRED
     Route: 048
  6. LAX-A-DAY [Concomitant]
  7. SYMBICORT [Concomitant]
     Active Substance: BUDESONIDE\FORMOTEROL FUMARATE DIHYDRATE
  8. VITAMIN D [Concomitant]
     Active Substance: CHOLECALCIFEROL
     Dosage: 1 TABLET ONCE DAILY
     Route: 048
  9. CLOPIDOGREL [Concomitant]
     Active Substance: CLOPIDOGREL BISULFATE
     Dosage: 75 MG 1 TABLET MORNING
  10. ISOPTO ATROPINE [Concomitant]
     Active Substance: ATROPINE SULFATE
     Dosage: 2 DROP UNDER THE TONGUE SWISH AND SWALLOW AT BEDTIME
  11. VITAMIN B12 [Concomitant]
     Active Substance: CYANOCOBALAMIN
     Dosage: 1 ML ONCE IN MONTH
     Route: 058
  12. METOPROLOL. [Concomitant]
     Active Substance: METOPROLOL
  13. APO-MISOPROSTOL [Concomitant]
     Route: 048
  14. ATORVASTATIN CALCIUM. [Concomitant]
     Active Substance: ATORVASTATIN CALCIUM
     Dosage: 40 MG 1 TABLET AT BEDTIME
     Route: 048
  15. LORAZEPAM. [Concomitant]
     Active Substance: LORAZEPAM
     Dosage: 2 MG 1 TABLET
     Route: 048
  16. NOVO-TRIMEL D9 [Concomitant]
     Dosage: 1 TABLET BY MOUTH TWICE DAILY

REACTIONS (6)
  - Electrocardiogram QT prolonged [Unknown]
  - Sinus tachycardia [Unknown]
  - QRS axis abnormal [Unknown]
  - Volvulus [Fatal]
  - Myocardial infarction [Unknown]
  - Left atrial enlargement [Unknown]

NARRATIVE: CASE EVENT DATE: 20170308
